FAERS Safety Report 10098964 (Version 1)
Quarter: 2014Q2

REPORT INFORMATION
  Report Type: Spontaneous
  Country: GB (occurrence: GB)
  Receive Date: 20140423
  Receipt Date: 20140423
  Transmission Date: 20141212
  Serious: Yes (Life-Threatening, Hospitalization, Other)
  Sender: FDA-Public Use
  Company Number: PHHY2014GB046026

PATIENT
  Age: 92 Year
  Sex: Female

DRUGS (6)
  1. AMOXICILLIN [Suspect]
     Indication: LOWER RESPIRATORY TRACT INFECTION
     Dosage: 250 MG, TID (250MG/5ML)
     Route: 048
     Dates: start: 20130902
  2. AMOXICILLIN [Suspect]
     Dosage: 250 MG, TID (250MG/5ML)
     Route: 048
     Dates: start: 20130926, end: 20131003
  3. CALCICHEW D3 [Concomitant]
     Dosage: 1 DF, QD
  4. FLECAINIDE [Concomitant]
     Dosage: 50 MG, BID
  5. NITROFURANTOIN [Concomitant]
     Dosage: 50 MG, UNK LONG TERM
  6. PARACETAMOL [Concomitant]

REACTIONS (6)
  - Pneumonia [Recovered/Resolved]
  - Cough [Recovered/Resolved]
  - Crepitations [Recovered/Resolved]
  - Systemic inflammatory response syndrome [Recovered/Resolved]
  - Medication error [Unknown]
  - Treatment failure [Unknown]
